FAERS Safety Report 8258448 (Version 4)
Quarter: 2014Q2

REPORT INFORMATION
  Report Type: Spontaneous
  Country: US (occurrence: US)
  Receive Date: 20111122
  Receipt Date: 20140528
  Transmission Date: 20141212
  Serious: Yes (Life-Threatening, Congenital Anomaly, Other)
  Sender: FDA-Public Use
  Company Number: US-PFIZER INC-2011281995

PATIENT
  Sex: Female

DRUGS (10)
  1. ZOLOFT [Suspect]
     Indication: ANXIETY
     Dosage: UNK
     Route: 064
     Dates: start: 2002, end: 2003
  2. ZOLOFT [Suspect]
     Indication: DEPRESSION
     Dosage: 50 MG, 1X/DAY
     Route: 064
     Dates: start: 20020814
  3. ADVAIR [Concomitant]
     Indication: ASTHMA
     Dosage: 250/50 MCG ONE PUFF TWICE A DAY
     Route: 064
  4. FLONASE [Concomitant]
     Dosage: UNK, EVERY DAY
     Route: 064
  5. CLARITIN [Concomitant]
     Dosage: UNK, AS NEEDED
     Route: 064
  6. PREVACID [Concomitant]
     Dosage: 15 MG, 1X/DAY
     Route: 064
  7. ALBUTEROL [Concomitant]
     Indication: ASTHMA
     Dosage: UNK, AS NEEDED
     Route: 064
  8. SINGULAIR [Concomitant]
     Indication: ASTHMA
     Dosage: UNK
     Route: 064
  9. PAXIL [Concomitant]
     Dosage: UNK
     Route: 064
  10. IBUPROFEN [Concomitant]
     Dosage: UNK
     Route: 064

REACTIONS (3)
  - Maternal exposure timing unspecified [Unknown]
  - Hypoplastic left heart syndrome [Unknown]
  - Congenital anomaly [Unknown]
